FAERS Safety Report 5774555-9 (Version None)
Quarter: 2008Q2

REPORT INFORMATION
  Report Type: 
  Country: None (occurrence: None)
  Receive Date: 20080612
  Receipt Date: 20080603
  Transmission Date: 20081010
  Serious: Yes (Hospitalization)
  Sender: FDA-Public Use
  Company Number: 2008BI010880

PATIENT
  Age: 51 Year
  Sex: Female

DRUGS (1)
  1. AVONEX [Suspect]
     Indication: MULTIPLE SCLEROSIS
     Dosage: 30 UG; QW; IM
     Route: 030
     Dates: start: 20061007

REACTIONS (7)
  - ARTHROPATHY [None]
  - CERVICAL VERTEBRAL FRACTURE [None]
  - FOOT FRACTURE [None]
  - HEAD INJURY [None]
  - MULTIPLE FRACTURES [None]
  - RIB FRACTURE [None]
  - ROAD TRAFFIC ACCIDENT [None]
